FAERS Safety Report 6718613-0 (Version None)
Quarter: 2010Q2

REPORT INFORMATION
  Report Type: 
  Country: None (occurrence: None)
  Receive Date: 20100510
  Receipt Date: 20100429
  Transmission Date: 20101027
  Serious: Yes (Death)
  Sender: FDA-Public Use
  Company Number: CH-MERCK-1005CHE00002

PATIENT

DRUGS (1)
  1. CANCIDAS [Suspect]
     Indication: FUNGAL INFECTION
     Route: 065

REACTIONS (2)
  - DRUG INEFFECTIVE [None]
  - SYSTEMIC MYCOSIS [None]
